FAERS Safety Report 26136308 (Version 1)
Quarter: 2025Q4

REPORT INFORMATION
  Report Type: Spontaneous
  Country: CN (occurrence: CN)
  Receive Date: 20251209
  Receipt Date: 20251209
  Transmission Date: 20260118
  Serious: Yes (Other)
  Sender: NOVARTIS
  Company Number: CN-002147023-NVSC2025CN186950

PATIENT
  Age: 64 Year
  Sex: Female
  Weight: 43 kg

DRUGS (2)
  1. TAFINLAR [Suspect]
     Active Substance: DABRAFENIB MESYLATE
     Indication: Lung neoplasm malignant
     Dosage: 150.000 MG, BID
     Route: 048
     Dates: start: 20251118, end: 20251120
  2. Disodium Cantharidinate and Vitamin B6 [Concomitant]
     Indication: Lung neoplasm malignant
     Dosage: 0.400 MG, QD
     Route: 041
     Dates: start: 20251117, end: 20251119

REACTIONS (3)
  - Myelosuppression [Unknown]
  - Post herpetic neuralgia [Recovering/Resolving]
  - Eating disorder [Unknown]

NARRATIVE: CASE EVENT DATE: 20251118
